FAERS Safety Report 6981041-7 (Version None)
Quarter: 2010Q3

REPORT INFORMATION
  Report Type: 
  Country: None (occurrence: None)
  Receive Date: 20100914
  Receipt Date: 20100903
  Transmission Date: 20110219
  Serious: Yes (Hospitalization)
  Sender: FDA-Public Use
  Company Number: GXKR2010GB10044

PATIENT
  Sex: Female

DRUGS (24)
  1. DIHYDROCODEINE (NGX) [Suspect]
     Route: 065
  2. DIHYDROCODEINE (NGX) [Suspect]
     Dosage: 30 MG, QD TO TID
     Route: 065
     Dates: start: 20090923
  3. PROPRANOLOL [Suspect]
     Route: 065
  4. SERTRALINE (NGX) [Suspect]
     Route: 065
  5. LANSOPRAZOLE (NCH) [Suspect]
     Dosage: UNK
     Route: 065
     Dates: start: 20040101
  6. LANSOPRAZOLE (NCH) [Suspect]
     Dosage: 400 MG, BID
     Route: 065
     Dates: start: 20040101
  7. ARIPIPRAZOLE [Suspect]
     Route: 065
  8. ARIPIPRAZOLE [Suspect]
     Dosage: 30 MG, UNK
     Route: 065
     Dates: start: 20100205
  9. LAMOTRIGINE [Suspect]
     Dosage: 400 MG, BID
     Route: 048
     Dates: start: 20040101
  10. NORETHISTERONE [Suspect]
     Route: 065
  11. NORETHISTERONE [Suspect]
     Dosage: 350 UG, UNK
     Route: 065
     Dates: start: 20090923
  12. AMOXICILLIN [Concomitant]
  13. BETAMETHASONE [Concomitant]
  14. CHLORAMPHENICOL [Concomitant]
  15. CLOBAZAM [Concomitant]
  16. AMPICILLIN SODIUM/SULBACTAM SODIUM [Concomitant]
  17. DICLOFENAC [Concomitant]
  18. FOLIC ACID [Concomitant]
  19. LACTULOSE [Concomitant]
  20. LIDOCAINE [Concomitant]
  21. MICONAZOLE [Concomitant]
  22. NUTRITION SUPPLEMENTS [Concomitant]
  23. OMEPRAZOLE [Concomitant]
  24. PROCHLORPERAZINE [Concomitant]

REACTIONS (5)
  - CHOLESTASIS OF PREGNANCY [None]
  - CONVULSION [None]
  - DRUG EXPOSURE DURING PREGNANCY [None]
  - LIVE BIRTH [None]
  - PREMATURE LABOUR [None]
